FAERS Safety Report 23093048 (Version 1)
Quarter: 2023Q4

REPORT INFORMATION
  Report Type: Spontaneous
  Country: GB (occurrence: GB)
  Receive Date: 20231021
  Receipt Date: 20231021
  Transmission Date: 20240110
  Serious: Yes (Other)
  Sender: FDA-Public Use
  Company Number: None

PATIENT
  Age: 73 Year
  Sex: Female
  Weight: 94 kg

DRUGS (7)
  1. CLOTRIMAZOLE [Suspect]
     Active Substance: CLOTRIMAZOLE
     Indication: Product used for unknown indication
     Dosage: APPLY 2-3 TIMES/DAY,
     Route: 065
     Dates: start: 20231004
  2. CLONAZEPAM [Concomitant]
     Active Substance: CLONAZEPAM
     Indication: Product used for unknown indication
     Dosage: 3 DOSAGE FORMS DAILY; UNIT DOSE: 1DF, FREQUENCY: THRICE DAILY
     Dates: start: 20221228
  3. CHOLECALCIFEROL [Concomitant]
     Active Substance: CHOLECALCIFEROL
     Indication: Product used for unknown indication
     Dosage: 1 DOSAGE FORMS DAILY; CAN BE CRUSHED, UNIT DOSE: 1DF, FREQUENCY: ONCE DAILY
     Dates: start: 20230731
  4. DERMOL [Concomitant]
     Active Substance: BENZALKONIUM CHLORIDE\CHLORHEXIDINE HYDROCHLORIDE\ISOPROPYL MYRISTATE\PARAFFIN
     Indication: Product used for unknown indication
     Dosage: USE AS NEEDED
     Dates: start: 20221228
  5. CHOLECALCIFEROL [Concomitant]
     Active Substance: CHOLECALCIFEROL
     Indication: Product used for unknown indication
     Dosage: 1 DOSAGE FORMS DAILY; CAN BE CRUSHED, UNIT DOSE: 1DF, FREQUENCY: ONCE DAILY, DURATION: 215 DAYS
     Dates: start: 20221228, end: 20230731
  6. MICONAZOLE [Concomitant]
     Active Substance: MICONAZOLE
     Indication: Product used for unknown indication
     Dosage: 2 DOSAGE FORMS DAILY; APPLY, FOR 7-10 DAYS, UNIT DOSE: 1DF, FREQUENCY: TWICE DAILY, DURATION: 7 DAYS
     Dates: start: 20230825, end: 20230901
  7. RIVAROXABAN [Concomitant]
     Active Substance: RIVAROXABAN
     Indication: Product used for unknown indication
     Dosage: 1 DOSAGE FORMS DAILY; WITH FOOD, UNIT DOSE: 1DF, FREQUENCY: ONCE DAILY
     Dates: start: 20221228

REACTIONS (1)
  - Eye swelling [Recovered/Resolved]
